FAERS Safety Report 5680556-1 (Version None)
Quarter: 2008Q1

REPORT INFORMATION
  Report Type: 
  Country: None (occurrence: None)
  Receive Date: 20080326
  Receipt Date: 20080317
  Transmission Date: 20080703
  Serious: Yes (Hospitalization)
  Sender: FDA-Public Use
  Company Number: US-JNJFOC-20080302224

PATIENT
  Sex: Female
  Weight: 43.09 kg

DRUGS (6)
  1. DOXIL [Suspect]
     Indication: OVARIAN CANCER
     Route: 042
  2. MORPHINE [Concomitant]
     Indication: PAIN
     Route: 065
  3. METHADON HCL TAB [Concomitant]
     Indication: PAIN
     Route: 065
  4. CARBOPLATIN [Concomitant]
     Indication: OVARIAN CANCER
     Route: 065
  5. ABILIFY [Concomitant]
  6. VITAMINS [Concomitant]

REACTIONS (7)
  - ABDOMINAL PAIN [None]
  - ARTHRALGIA [None]
  - CHEST PAIN [None]
  - INFLUENZA [None]
  - NAUSEA [None]
  - PYREXIA [None]
  - VOMITING [None]
